FAERS Safety Report 13523538 (Version 1)
Quarter: 2017Q2

REPORT INFORMATION
  Report Type: Spontaneous
  Country: US (occurrence: US)
  Receive Date: 20170508
  Receipt Date: 20170508
  Transmission Date: 20170830
  Serious: No
  Sender: FDA-Public Use
  Company Number: US-VIFOR (INTERNATIONAL) INC.-VIT-2017-04456

PATIENT
  Sex: Male

DRUGS (11)
  1. VELTASSA [Suspect]
     Active Substance: PATIROMER
     Indication: HYPERKALAEMIA
     Route: 048
     Dates: start: 20170222
  2. TELMISARTAN. [Concomitant]
     Active Substance: TELMISARTAN
  3. ACETAMIN [Concomitant]
     Active Substance: ACETAMINOPHEN
  4. FUROSEMIDE. [Concomitant]
     Active Substance: FUROSEMIDE
  5. CARVEDILOL. [Concomitant]
     Active Substance: CARVEDILOL
  6. NIFEDIPINE. [Concomitant]
     Active Substance: NIFEDIPINE
  7. CRESTOR [Concomitant]
     Active Substance: ROSUVASTATIN CALCIUM
  8. LEVOTHYROXINE SODIUM. [Concomitant]
     Active Substance: LEVOTHYROXINE SODIUM
  9. CENTRUM [Concomitant]
     Active Substance: VITAMINS
  10. OMEGA-3 ACIDS [Concomitant]
     Active Substance: OMEGA-3 FATTY ACIDS
  11. NOVOLIN [Concomitant]
     Active Substance: INSULIN HUMAN

REACTIONS (1)
  - Asthenia [Not Recovered/Not Resolved]

NARRATIVE: CASE EVENT DATE: 2017
